FAERS Safety Report 18141872 (Version 1)
Quarter: 2020Q3

REPORT INFORMATION
  Report Type: Spontaneous
  Country: BR (occurrence: BR)
  Receive Date: 20200812
  Receipt Date: 20200812
  Transmission Date: 20201103
  Serious: Yes (Other)
  Sender: FDA-Public Use
  Company Number: BR-ASTRAZENECA-2020SE99391

PATIENT
  Age: 21150 Day
  Sex: Male

DRUGS (2)
  1. XIGDUO XR [Suspect]
     Active Substance: DAPAGLIFLOZIN PROPANEDIOL\METFORMIN HYDROCHLORIDE
     Indication: GLUCOSE TOLERANCE IMPAIRED
     Dosage: 10/1000 MG, 1 TABLET AFTER MEAL AT NIGHT
     Route: 048
     Dates: start: 20200709, end: 20200711
  2. XIGDUO XR [Suspect]
     Active Substance: DAPAGLIFLOZIN PROPANEDIOL\METFORMIN HYDROCHLORIDE
     Indication: WEIGHT CONTROL
     Dosage: 10/1000 MG, 1 TABLET AFTER MEAL AT NIGHT
     Route: 048
     Dates: start: 20200709, end: 20200711

REACTIONS (1)
  - Scrotal haemorrhage [Recovered/Resolved]

NARRATIVE: CASE EVENT DATE: 20200709
